FAERS Safety Report 22031265 (Version 4)
Quarter: 2024Q2

REPORT INFORMATION
  Report Type: Other
  Country: NL (occurrence: None)
  Receive Date: 20230223
  Receipt Date: 20240528
  Transmission Date: 20240715
  Serious: Yes (Hospitalization)
  Sender: FDA-Public Use
  Company Number: NL-ROCHE-3291083

PATIENT
  Age: 58 Year
  Sex: Female
  Weight: 67 kg

DRUGS (12)
  1. OCRELIZUMAB [Suspect]
     Active Substance: OCRELIZUMAB
     Indication: Primary progressive multiple sclerosis
     Dosage: ON 31/MAY/2022 THE MOST RECENT DOSE 600MG OF STUDY DRUG PRIOR TO AE AND SAE, TOTAL VOLUME PRIOR AE A
     Route: 042
     Dates: start: 20181212, end: 20181212
  2. OCRELIZUMAB [Suspect]
     Active Substance: OCRELIZUMAB
     Dosage: SUBSEQUENT DOSE RECEIVED ON 11/DEC/2019, 14/MAY/2020, 20/NOV/2020, 14/MAY/2021, 19/NOV/2021, 31/MAY/
     Route: 042
     Dates: start: 20190611, end: 20190611
  3. DALFAMPRIDINE [Concomitant]
     Active Substance: DALFAMPRIDINE
     Route: 048
     Dates: start: 20190215
  4. DALFAMPRIDINE [Concomitant]
     Active Substance: DALFAMPRIDINE
     Route: 048
     Dates: start: 20190215
  5. CHOLECALCIFEROL [Concomitant]
     Active Substance: CHOLECALCIFEROL
     Indication: Prophylaxis
     Dosage: 800 OTHER: DOSE
     Route: 048
     Dates: start: 20181227
  6. DIAZEPAM [Concomitant]
     Active Substance: DIAZEPAM
     Route: 048
     Dates: start: 20210603, end: 20230111
  7. ACETAMINOPHEN [Concomitant]
     Active Substance: ACETAMINOPHEN
     Dosage: SUBSEQUENT DOSE RECEIVED ON 04/MAR/2022
     Route: 048
     Dates: start: 20210426
  8. PREGABALIN [Concomitant]
     Active Substance: PREGABALIN
     Route: 048
     Dates: start: 20210603
  9. NADROPARIN CALCIUM [Concomitant]
     Active Substance: NADROPARIN CALCIUM
     Route: 058
     Dates: start: 20220304
  10. MIRABEGRON [Concomitant]
     Active Substance: MIRABEGRON
     Dosage: YES
     Route: 048
     Dates: start: 20220817
  11. TOVIAZ [Concomitant]
     Active Substance: FESOTERODINE FUMARATE
     Route: 048
     Dates: start: 20221123
  12. FUROSEMIDE [Concomitant]
     Active Substance: FUROSEMIDE
     Indication: Prophylaxis
     Route: 048
     Dates: start: 20220305

REACTIONS (1)
  - Pyelonephritis [Recovered/Resolved]

NARRATIVE: CASE EVENT DATE: 20230123
